FAERS Safety Report 24913599 (Version 1)
Quarter: 2025Q1

REPORT INFORMATION
  Report Type: Spontaneous
  Country: US (occurrence: US)
  Receive Date: 20250201
  Receipt Date: 20250201
  Transmission Date: 20250409
  Serious: No
  Sender: DAIICHI
  Company Number: US-DAIICHI SANKYO, INC.-DS-2025-122813-USAA

PATIENT
  Age: 83 Year
  Sex: Female

DRUGS (2)
  1. ENHERTU [Suspect]
     Active Substance: FAM-TRASTUZUMAB DERUXTECAN-NXKI
     Indication: HER2 low breast cancer
     Route: 065
     Dates: start: 2024
  2. ENHERTU [Suspect]
     Active Substance: FAM-TRASTUZUMAB DERUXTECAN-NXKI
     Route: 065

REACTIONS (3)
  - Fatigue [Unknown]
  - Cardiac valve disease [Unknown]
  - Ejection fraction decreased [Unknown]
